FAERS Safety Report 8250266-5 (Version None)
Quarter: 2012Q1

REPORT INFORMATION
  Report Type: 
  Country: None (occurrence: None)
  Receive Date: 20120328
  Receipt Date: 20120313
  Transmission Date: 20120608
  Serious: Yes (Other)
  Sender: FDA-Public Use
  Company Number: FR-20120060

PATIENT
  Age: 74 Year
  Sex: Male

DRUGS (2)
  1. HEXABRIX [Suspect]
     Dosage: (1 IN 1 TOT- 2) INTRAVENOUS
     Route: 042
     Dates: start: 20111129
  2. HEPARIN [Suspect]
     Dosage: 5000 IU (5000I-U) INTRAVENOUS
     Route: 042
     Dates: start: 20111129

REACTIONS (6)
  - HYPERSENSITIVITY [None]
  - SKIN TEST POSITIVE [None]
  - OROPHARYNGEAL DISCOMFORT [None]
  - HAEMODYNAMIC INSTABILITY [None]
  - PROCEDURAL COMPLICATION [None]
  - PRESYNCOPE [None]
